FAERS Safety Report 7427238-3 (Version None)
Quarter: 2011Q2

REPORT INFORMATION
  Report Type: 
  Country: None (occurrence: None)
  Receive Date: 20110420
  Receipt Date: 20110414
  Transmission Date: 20111010
  Serious: Yes (Other)
  Sender: FDA-Public Use
  Company Number: US-PFIZER INC-2011082751

PATIENT
  Sex: Female
  Weight: 94.2 kg

DRUGS (3)
  1. FOLINIC ACID [Concomitant]
     Dosage: UNK
  2. CAMPTOSAR [Suspect]
     Indication: COLON CANCER METASTATIC
     Dosage: 286 MG/M2, UNK
     Route: 042
     Dates: start: 20101223
  3. ERBITUX [Concomitant]
     Dosage: UNK

REACTIONS (2)
  - WEIGHT DECREASED [None]
  - DEEP VEIN THROMBOSIS [None]
